FAERS Safety Report 8995339 (Version 1)
Quarter: 2013Q1

REPORT INFORMATION
  Report Type: Spontaneous
  Country: US (occurrence: US)
  Receive Date: 20130102
  Receipt Date: 20130102
  Transmission Date: 20140127
  Serious: Yes (Death)
  Sender: FDA-Public Use
  Company Number: US-ASTRAZENECA-2012SE96417

PATIENT
  Age: 6 Month
  Sex: Female

DRUGS (4)
  1. SYNAGIS [Suspect]
     Indication: HEART DISEASE CONGENITAL
     Dosage: 100 MG/ML, 15 MG/ML, ONCE A MONTH
     Route: 030
     Dates: start: 20121107
  2. SYNAGIS [Suspect]
     Indication: DIAPHRAGMATIC DISORDER
     Dosage: 100 MG/ML, 15 MG/ML, ONCE A MONTH
     Route: 030
     Dates: start: 20121107
  3. SYNAGIS [Suspect]
     Indication: HEART DISEASE CONGENITAL
     Dosage: 100 MG/ML, 15 MG/ML, ONCE A MONTH
     Route: 030
     Dates: start: 20121107, end: 20121119
  4. SYNAGIS [Suspect]
     Indication: DIAPHRAGMATIC DISORDER
     Dosage: 100 MG/ML, 15 MG/ML, ONCE A MONTH
     Route: 030
     Dates: start: 20121107, end: 20121119

REACTIONS (1)
  - Death [Fatal]
